FAERS Safety Report 13979528 (Version 3)
Quarter: 2017Q4

REPORT INFORMATION
  Report Type: Report from Study
  Country: IT (occurrence: IT)
  Receive Date: 20170914
  Receipt Date: 20171107
  Transmission Date: 20180321
  Serious: Yes (Hospitalization)
  Sender: FDA-Public Use
  Company Number: IT-TEVA-804956ACC

PATIENT
  Age: 76 Year
  Sex: Male

DRUGS (12)
  1. MYOCET [Suspect]
     Active Substance: DOXORUBICIN
     Indication: DIFFUSE LARGE B-CELL LYMPHOMA
     Dosage: SECOND CYCLE
     Route: 042
     Dates: start: 20170121, end: 20170121
  2. MABTHERA [Suspect]
     Active Substance: RITUXIMAB
     Indication: DIFFUSE LARGE B-CELL LYMPHOMA
     Route: 042
     Dates: start: 20170121
  3. LONQUEX [Suspect]
     Active Substance: LIPEGFILGRASTIM
     Indication: PROPHYLAXIS
     Dates: start: 20170108
  4. ENDOXAN [Suspect]
     Active Substance: CYCLOPHOSPHAMIDE
     Dosage: THIRD CYCLE
     Dates: start: 20170210, end: 20170210
  5. LINEZOLID. [Concomitant]
     Active Substance: LINEZOLID
     Indication: INFECTION
     Route: 042
     Dates: start: 20170227
  6. MYOCET [Suspect]
     Active Substance: DOXORUBICIN
     Dosage: THIRD CYCLE
     Dates: start: 20170210, end: 20170210
  7. VINCRISTINE TEVA [Suspect]
     Active Substance: VINCRISTINE
     Indication: DIFFUSE LARGE B-CELL LYMPHOMA
     Dosage: SECOND CYCLE
     Route: 042
     Dates: start: 20170121, end: 20170121
  8. DEXAMETHASONE. [Suspect]
     Active Substance: DEXAMETHASONE
     Indication: LYMPHOMA
     Route: 042
     Dates: start: 20170210, end: 20170210
  9. VINCRISTINE TEVA [Suspect]
     Active Substance: VINCRISTINE
     Dosage: THIRD CYCLE
     Dates: start: 20170210, end: 20170210
  10. ENDOXAN [Suspect]
     Active Substance: CYCLOPHOSPHAMIDE
     Indication: DIFFUSE LARGE B-CELL LYMPHOMA
     Dosage: SECOND CYCLE
     Route: 042
     Dates: start: 20170121, end: 20170121
  11. LONQUEX [Suspect]
     Active Substance: LIPEGFILGRASTIM
     Dosage: 6 MILLIGRAM DAILY; THIRD CYCLE
     Route: 058
     Dates: start: 20170211, end: 20170211
  12. MABTHERA [Suspect]
     Active Substance: RITUXIMAB
     Dosage: THIRD CYCLE
     Dates: start: 20170209, end: 20170209

REACTIONS (1)
  - Pulmonary toxicity [Recovered/Resolved]

NARRATIVE: CASE EVENT DATE: 20170228
